FAERS Safety Report 11432836 (Version 1)
Quarter: 2015Q3

REPORT INFORMATION
  Report Type: Spontaneous
  Country: US (occurrence: US)
  Receive Date: 20150828
  Receipt Date: 20150828
  Transmission Date: 20151125
  Serious: No
  Sender: FDA-Public Use
  Company Number: US-LUNDBECK-DKLU2002492

PATIENT
  Sex: Female

DRUGS (1)
  1. SABRIL [Suspect]
     Active Substance: VIGABATRIN
     Indication: ILL-DEFINED DISORDER
     Route: 048
     Dates: start: 20150306

REACTIONS (2)
  - Blepharospasm [Unknown]
  - Eye movement disorder [Unknown]
